FAERS Safety Report 6055116-3 (Version None)
Quarter: 2009Q1

REPORT INFORMATION
  Report Type: 
  Country: None (occurrence: None)
  Receive Date: 20090128
  Receipt Date: 20090121
  Transmission Date: 20090719
  Serious: Yes (Death)
  Sender: FDA-Public Use
  Company Number: JP-BRISTOL-MYERS SQUIBB COMPANY-14482400

PATIENT
  Age: 55 Year
  Sex: Female

DRUGS (4)
  1. TAXOL [Suspect]
     Indication: OVARIAN EPITHELIAL CANCER
     Route: 041
  2. PARAPLATIN [Suspect]
     Indication: OVARIAN EPITHELIAL CANCER
     Route: 041
  3. AQUPLA [Suspect]
     Route: 042
  4. RADIOTHERAPY [Suspect]

REACTIONS (1)
  - ACUTE MYELOID LEUKAEMIA [None]
